FAERS Safety Report 6428893-7 (Version None)
Quarter: 2009Q4

REPORT INFORMATION
  Report Type: 
  Country: None (occurrence: None)
  Receive Date: 20091102
  Receipt Date: 20091021
  Transmission Date: 20100525
  Serious: Yes (Other)
  Sender: FDA-Public Use
  Company Number: 232194J09USA

PATIENT
  Age: 32 Year
  Sex: Female
  Weight: 128 kg

DRUGS (5)
  1. REBIF [Suspect]
     Indication: MULTIPLE SCLEROSIS
     Dosage: 44 MCG, 3 IN 1 WEEKS, SUBCUTANEOUS
     Route: 058
     Dates: start: 20071012
  2. GLYBURIDE [Concomitant]
  3. TYROID MEDICATION (THYROID THERAPY) [Concomitant]
  4. WELLBUTRIN [Concomitant]
  5. METFORMIN HCL [Concomitant]

REACTIONS (4)
  - CHOLELITHIASIS [None]
  - DEHYDRATION [None]
  - NAUSEA [None]
  - VOMITING [None]
